FAERS Safety Report 17965254 (Version 2)
Quarter: 2020Q3

REPORT INFORMATION
  Report Type: Report from Study
  Country: CO (occurrence: CO)
  Receive Date: 20200701
  Receipt Date: 20200904
  Transmission Date: 20201103
  Serious: Yes (Hospitalization)
  Sender: FDA-Public Use
  Company Number: CO-AMGEN-COLSL2020102414

PATIENT
  Age: 28 Year
  Sex: Female
  Weight: 55 kg

DRUGS (9)
  1. FLAXEN [Concomitant]
     Active Substance: VENLAFAXINE HYDROCHLORIDE
     Indication: ARTHRITIS
     Dosage: 20 MILLIGRAM, QD
     Dates: start: 2014, end: 20200725
  2. ADALIMUMAB [Concomitant]
     Active Substance: ADALIMUMAB
     Dosage: UNK UNK, Q2WK
     Dates: start: 2015, end: 20200725
  3. METHOTREXATE SODIUM. [Concomitant]
     Active Substance: METHOTREXATE SODIUM
     Dosage: 2.5 MILLIGRAM, TID
     Dates: start: 2014, end: 20200725
  4. PREDNISONE. [Concomitant]
     Active Substance: PREDNISONE
     Indication: ARTHRITIS
     Dosage: 5 MILLIGRAM, TID
     Dates: start: 2014, end: 20200725
  5. KOLA GRANULADA [Concomitant]
     Dosage: UNK
     Dates: start: 202003, end: 20200725
  6. AMGEVITA [Suspect]
     Active Substance: ADALIMUMAB
     Indication: RHEUMATOID ARTHRITIS
     Dosage: 40 MILLIGRAM, Q2WK
     Route: 058
     Dates: start: 20200303
  7. CALCITRIOL. [Concomitant]
     Active Substance: CALCITRIOL
     Dosage: UNK UNK, QD,
     Dates: start: 202003, end: 20200725
  8. ACETAMINOPHEN. [Concomitant]
     Active Substance: ACETAMINOPHEN
     Indication: PAIN
     Dosage: 500 MILLIGRAM, 1 TAB AS PER PAIN
     Dates: start: 202003, end: 20200725
  9. FOLIC ACID. [Concomitant]
     Active Substance: FOLIC ACID
     Dosage: 1 MILLIGRAM, QD
     Dates: start: 2019, end: 20200725

REACTIONS (6)
  - Pain in extremity [Recovering/Resolving]
  - Pharyngitis [Recovered/Resolved]
  - Headache [Recovering/Resolving]
  - Arthralgia [Not Recovered/Not Resolved]
  - Synovial cyst [Recovered/Resolved]
  - Inflammation [Recovering/Resolving]

NARRATIVE: CASE EVENT DATE: 20200306
